FAERS Safety Report 10227018 (Version 2)
Quarter: 2014Q2

REPORT INFORMATION
  Report Type: Spontaneous
  Country: US (occurrence: US)
  Receive Date: 20140610
  Receipt Date: 20140623
  Transmission Date: 20141212
  Serious: Yes (Life-Threatening, Hospitalization, Other)
  Sender: FDA-Public Use
  Company Number: US-AMGEN-USASP2014041330

PATIENT
  Age: 56 Year
  Sex: Male

DRUGS (7)
  1. NEUPOGEN [Suspect]
     Indication: NEUTROPENIA
     Dosage: 480 MCG/DAY
     Route: 065
  2. BLEOMYCIN [Concomitant]
     Indication: GERM CELL CANCER
     Dosage: UNK
  3. ETOPOSIDE [Concomitant]
     Indication: GERM CELL CANCER
     Dosage: UNK
  4. CISPLATIN [Concomitant]
     Indication: GERM CELL CANCER
     Dosage: UNK
  5. CEFEPIME [Concomitant]
     Indication: FEBRILE NEUTROPENIA
     Dosage: UNK
  6. VANCOMYCIN [Concomitant]
     Indication: STAPHYLOCOCCAL INFECTION
     Dosage: UNK
  7. CEFTAZIDIME [Concomitant]
     Dosage: UNK

REACTIONS (8)
  - Meningitis cryptococcal [Unknown]
  - Immune reconstitution inflammatory syndrome [Unknown]
  - Generalised tonic-clonic seizure [Unknown]
  - Encephalopathy [Unknown]
  - Pericarditis [Unknown]
  - Lethargy [Unknown]
  - Confusional state [Unknown]
  - Apnoea [Unknown]
